FAERS Safety Report 26164386 (Version 1)
Quarter: 2025Q4

REPORT INFORMATION
  Report Type: Spontaneous
  Country: EU (occurrence: EU)
  Receive Date: 20251216
  Receipt Date: 20251216
  Transmission Date: 20260117
  Serious: Yes (Hospitalization, Disabling, Other)
  Sender: PFIZER
  Company Number: None

PATIENT
  Age: 21 Year
  Sex: Female

DRUGS (1)
  1. ADCETRIS [Suspect]
     Active Substance: BRENTUXIMAB VEDOTIN
     Indication: Hodgkin^s disease
     Dosage: UNK
     Route: 042
     Dates: start: 20250826, end: 20250919

REACTIONS (8)
  - Vitreous floaters [Not Recovered/Not Resolved]
  - Uveitis [Not Recovered/Not Resolved]
  - Blindness [Not Recovered/Not Resolved]
  - Visual field defect [Not Recovered/Not Resolved]
  - Mydriasis [Not Recovered/Not Resolved]
  - Photophobia [Not Recovered/Not Resolved]
  - Macular oedema [Not Recovered/Not Resolved]
  - Macular fibrosis [Not Recovered/Not Resolved]

NARRATIVE: CASE EVENT DATE: 20251003
